FAERS Safety Report 11219253 (Version 1)
Quarter: 2015Q2

REPORT INFORMATION
  Report Type: Spontaneous
  Country: US (occurrence: US)
  Receive Date: 20150625
  Receipt Date: 20150625
  Transmission Date: 20150821
  Serious: Yes (Other)
  Sender: FDA-Public Use
  Company Number: US-BAYER-2015-362405

PATIENT
  Age: 20 Year
  Sex: Female
  Weight: 44 kg

DRUGS (1)
  1. MIDOL [Suspect]
     Active Substance: IBUPROFEN
     Dosage: 2 DF, BID
     Route: 048
     Dates: start: 20150616

REACTIONS (2)
  - Haematochezia [Recovered/Resolved]
  - Diarrhoea [Recovered/Resolved]

NARRATIVE: CASE EVENT DATE: 20150617
